FAERS Safety Report 7324268-7 (Version None)
Quarter: 2011Q1

REPORT INFORMATION
  Report Type: 
  Country: None (occurrence: None)
  Receive Date: 20110301
  Receipt Date: 20110222
  Transmission Date: 20110831
  Serious: Yes (Hospitalization, Other)
  Sender: FDA-Public Use
  Company Number: AR-AMGEN-ARGSP2011008129

PATIENT
  Age: 78 Year
  Sex: Female
  Weight: 69 kg

DRUGS (3)
  1. CALCIO CARBONATO                   /00944201/ [Concomitant]
     Dosage: UNK
  2. KETOROLAC TROMETHAMINE [Concomitant]
     Dosage: UNK
  3. ENBREL [Suspect]
     Indication: RHEUMATOID ARTHRITIS
     Dosage: 25 MG, 2X/WEEK
     Dates: start: 20090201, end: 20110101

REACTIONS (3)
  - DRUG INEFFECTIVE [None]
  - SYNCOPE [None]
  - BRONCHITIS [None]
